FAERS Safety Report 23754432 (Version 1)
Quarter: 2024Q2

REPORT INFORMATION
  Report Type: Spontaneous
  Country: US (occurrence: US)
  Receive Date: 20240418
  Receipt Date: 20240418
  Transmission Date: 20240716
  Serious: No
  Sender: FDA-Public Use
  Company Number: US-STRIDES ARCOLAB LIMITED-2023SP010544

PATIENT

DRUGS (2)
  1. AMPICILLIN [Suspect]
     Active Substance: AMPICILLIN
     Indication: Endocarditis enterococcal
     Dosage: UNK
     Route: 065
  2. CEFTRIAXONE [Suspect]
     Active Substance: CEFTRIAXONE\CEFTRIAXONE SODIUM
     Indication: Endocarditis enterococcal
     Dosage: UNK
     Route: 065

REACTIONS (1)
  - Rash [Unknown]
